FAERS Safety Report 9486102 (Version 3)
Quarter: 2013Q3

REPORT INFORMATION
  Report Type: Spontaneous
  Country: ZA (occurrence: ZA)
  Receive Date: 20130829
  Receipt Date: 20130909
  Transmission Date: 20140515
  Serious: Yes (Other)
  Sender: FDA-Public Use
  Company Number: ZA-NOVOPROD-373903

PATIENT
  Age: 34 Year
  Sex: Female
  Weight: 124 kg

DRUGS (4)
  1. LEVEMIR FLEXPEN [Suspect]
     Indication: GESTATIONAL DIABETES
     Dosage: 40 IU, QD(20 IU PRE-BREAFAST AND 20 UNITS PRE BEDTIME)
     Route: 058
     Dates: start: 20130308
  2. LEVEMIR FLEXPEN [Suspect]
     Dosage: 58 IU, QD (30+28)
     Route: 058
  3. HYPERPHEN [Concomitant]
     Indication: HYPERTENSION
     Dosage: UNKNOWN
     Route: 065
  4. MAXIVIT [Concomitant]
     Dosage: UNKNOWN
     Route: 065

REACTIONS (3)
  - Premature delivery [Unknown]
  - Exposure during pregnancy [Unknown]
  - Cystitis [Recovered/Resolved]
